FAERS Safety Report 20016215 (Version 1)
Quarter: 2021Q4

REPORT INFORMATION
  Report Type: Spontaneous
  Country: US (occurrence: None)
  Receive Date: 20211102
  Receipt Date: 20211102
  Transmission Date: 20220303
  Serious: Yes (Hospitalization)
  Sender: FDA-Public Use
  Company Number: None

PATIENT
  Age: 65 Year
  Sex: Female

DRUGS (8)
  1. DIMETHYL FUMARATE [Suspect]
     Active Substance: DIMETHYL FUMARATE
     Indication: Multiple sclerosis
     Dosage: FREQUENCY : TWICE A DAY;?
     Route: 048
     Dates: start: 20201124
  2. ALLERGY RELF TAB [Concomitant]
  3. ATORVASTATIN [Concomitant]
     Active Substance: ATORVASTATIN
  4. CALCIUM\CHOLECALCIFEROL [Concomitant]
     Active Substance: CALCIUM\CHOLECALCIFEROL
  5. CITALOPRAM [Concomitant]
     Active Substance: CITALOPRAM HYDROBROMIDE
  6. CLONAZEPAM [Concomitant]
     Active Substance: CLONAZEPAM
  7. FlSH OIL [Concomitant]
  8. LAMICTAL [Concomitant]
     Active Substance: LAMOTRIGINE

REACTIONS (10)
  - Gastrooesophageal reflux disease [None]
  - Hyperlipidaemia [None]
  - Arthralgia [None]
  - Partial seizures [None]
  - Focal dyscognitive seizures [None]
  - Major depression [None]
  - Gait disturbance [None]
  - Arthritis [None]
  - Gait spastic [None]
  - Osteoarthritis [None]

NARRATIVE: CASE EVENT DATE: 20211026
